FAERS Safety Report 6100635-4 (Version None)
Quarter: 2009Q1

REPORT INFORMATION
  Report Type: 
  Country: None (occurrence: None)
  Receive Date: 20090227
  Receipt Date: 20090227
  Transmission Date: 20090719
  Serious: No
  Sender: FDA-Public Use
  Company Number: None

PATIENT
  Sex: Female
  Weight: 67.73 kg

DRUGS (13)
  1. TRAMADOL HCL [Suspect]
     Dosage: 50MG TABLET 50 MG Q6H ORAL
     Route: 048
     Dates: start: 20090206, end: 20090227
  2. ALENDRONATE SODIUM [Concomitant]
  3. ASPIRIN [Concomitant]
  4. CALCIUM CITRATE [Concomitant]
  5. FLUTICASONE PROPIONATE [Concomitant]
  6. HYDROCORTISONE [Concomitant]
  7. LORATADINE [Concomitant]
  8. MOMETASONE FUROATE [Concomitant]
  9. MULIVITAMIN THERAPEUTIC (THERAPEUTIC MULTIVITAMINS) [Concomitant]
  10. NIZORAL 2% SHAMPOO (KETOCONAZOLE 2% SHAMPOO) [Concomitant]
  11. NYSTATIN OINTMENT [Concomitant]
  12. SIMVASTATIN [Concomitant]
  13. SYNTHROID [Concomitant]

REACTIONS (1)
  - GASTROINTESTINAL DISORDER [None]
